FAERS Safety Report 4485041-0 (Version None)
Quarter: 2004Q4

REPORT INFORMATION
  Report Type: 
  Country: None (occurrence: None)
  Receive Date: 20041022
  Receipt Date: 20041022
  Transmission Date: 20050328
  Serious: Yes (Other)
  Sender: FDA-Public Use
  Company Number: None

PATIENT

DRUGS (1)
  1. ELOXATIN [Suspect]

REACTIONS (6)
  - ACCIDENTAL EXPOSURE [None]
  - BURNING SENSATION [None]
  - HEADACHE [None]
  - HYPOAESTHESIA ORAL [None]
  - LACRIMATION INCREASED [None]
  - THROAT IRRITATION [None]
